FAERS Safety Report 6096461-5 (Version None)
Quarter: 2009Q1

REPORT INFORMATION
  Report Type: 
  Country: None (occurrence: None)
  Receive Date: 20090227
  Receipt Date: 20090102
  Transmission Date: 20090719
  Serious: No
  Sender: FDA-Public Use
  Company Number: A0762070A

PATIENT
  Age: 58 Year
  Sex: Male

DRUGS (8)
  1. LAMICTAL [Suspect]
     Indication: BIPOLAR DISORDER
     Dosage: 200MG PER DAY
     Route: 048
     Dates: start: 20080101
  2. LOVASTATIN [Concomitant]
  3. ENALAPRIL [Concomitant]
  4. PROVIGIL [Concomitant]
  5. LOVAZA [Concomitant]
  6. METROGEL [Concomitant]
  7. UNKNOWN MEDICATION [Concomitant]
     Route: 061
  8. SLEEPING MEDICATION [Concomitant]

REACTIONS (3)
  - CYST [None]
  - RASH [None]
  - ROSACEA [None]
